FAERS Safety Report 5493439-7 (Version None)
Quarter: 2007Q4

REPORT INFORMATION
  Report Type: 
  Country: None (occurrence: None)
  Receive Date: 20071022
  Receipt Date: 20071022
  Transmission Date: 20080405
  Serious: Yes (Life-Threatening)
  Sender: FDA-Public Use
  Company Number: None

PATIENT
  Age: 35 Year
  Sex: Female
  Weight: 74.3899 kg

DRUGS (1)
  1. GADOPENTETATE DIMEGLUMINE [Suspect]
     Indication: HYPOTHALAMO-PITUITARY DISORDER
     Dates: start: 20071016, end: 20071016

REACTIONS (15)
  - ASTHENIA [None]
  - BLOOD PRESSURE FLUCTUATION [None]
  - CHEST DISCOMFORT [None]
  - CHILLS [None]
  - DYSPNOEA [None]
  - FEELING COLD [None]
  - INJECTION SITE PAIN [None]
  - NAUSEA [None]
  - PAIN IN EXTREMITY [None]
  - SKIN DISCOLOURATION [None]
  - THROAT TIGHTNESS [None]
  - TREMOR [None]
  - URTICARIA [None]
  - VEIN DISORDER [None]
  - VISION BLURRED [None]
